FAERS Safety Report 9776820 (Version 2)
Quarter: 2014Q1

REPORT INFORMATION
  Report Type: Report from Study
  Country: US (occurrence: US)
  Receive Date: 20131221
  Receipt Date: 20140116
  Transmission Date: 20141002
  Serious: Yes (Hospitalization)
  Sender: FDA-Public Use
  Company Number: PHHO2013US016366

PATIENT
  Age: 60 Year
  Sex: Female
  Weight: 57.5 kg

DRUGS (2)
  1. MEK162 [Suspect]
     Indication: GASTROINTESTINAL STROMAL TUMOUR
     Dosage: 30 MG, UNK
     Route: 048
     Dates: start: 20131204, end: 20131209
  2. STI571 [Suspect]
     Indication: GASTROINTESTINAL STROMAL TUMOUR
     Dosage: 400 MG, UNK
     Route: 048
     Dates: start: 20131204, end: 20131209

REACTIONS (1)
  - Peritoneal haemorrhage [Recovered/Resolved with Sequelae]
